FAERS Safety Report 9538495 (Version 1)
Quarter: 2013Q2

REPORT INFORMATION
  Report Type: Spontaneous
  Country: US (occurrence: None)
  Receive Date: 20130507
  Receipt Date: 20130507
  Transmission Date: 20140414
  Serious: No
  Sender: FDA-Public Use
  Company Number: PHEH2013US002409

PATIENT
  Age: 65 Year
  Sex: Female

DRUGS (6)
  1. AFINITOR(RAD)TABLET [Suspect]
     Indication: BREAST CANCER
     Route: 048
  2. AROMASIN(EXEMESTANE) [Concomitant]
  3. METHADONE(METHADONE) [Concomitant]
  4. GLUCOPHAGE(METFORMIN HYDROCHLORIDE) [Concomitant]
  5. GLYBURIDE(GLIBENCLAMIDE) [Concomitant]
  6. PREVACID(LANSOPRAZOLE) [Concomitant]

REACTIONS (1)
  - Rash [None]
